FAERS Safety Report 14792508 (Version 1)
Quarter: 2018Q2

REPORT INFORMATION
  Report Type: Spontaneous
  Country: US (occurrence: US)
  Receive Date: 20180414
  Receipt Date: 20180414
  Transmission Date: 20180711
  Serious: No
  Sender: FDA-Public Use
  Company Number: None

PATIENT
  Age: 54 Year
  Sex: Male
  Weight: 67.5 kg

DRUGS (4)
  1. NYSTOP [Concomitant]
     Active Substance: NYSTATIN
  2. LEXAPRO [Concomitant]
     Active Substance: ESCITALOPRAM OXALATE
  3. TRUVADA [Suspect]
     Active Substance: EMTRICITABINE\TENOFOVIR DISOPROXIL FUMARATE
     Indication: HIV INFECTION
     Dosage: ?          QUANTITY:30 TABLET(S);?
     Route: 048
     Dates: start: 20180302, end: 20180304
  4. CLOBETASOL [Concomitant]
     Active Substance: CLOBETASOL

REACTIONS (16)
  - Groin pain [None]
  - Abdominal discomfort [None]
  - Constipation [None]
  - Testicular pain [None]
  - Decreased appetite [None]
  - Depression [None]
  - Pain [None]
  - Lethargy [None]
  - Fatigue [None]
  - Insomnia [None]
  - Anxiety [None]
  - Arthralgia [None]
  - Eye pain [None]
  - Headache [None]
  - Mental impairment [None]
  - Eczema [None]

NARRATIVE: CASE EVENT DATE: 20180303
